FAERS Safety Report 5520012-4 (Version None)
Quarter: 2007Q4

REPORT INFORMATION
  Report Type: 
  Country: None (occurrence: None)
  Receive Date: 20071116
  Receipt Date: 20071113
  Transmission Date: 20080405
  Serious: No
  Sender: FDA-Public Use
  Company Number: US-ASTRAZENECA-2007UW22474

PATIENT
  Age: 18518 Day
  Sex: Female
  Weight: 144.5 kg

DRUGS (3)
  1. FASLODEX [Suspect]
     Indication: BREAST CANCER METASTATIC
     Route: 030
     Dates: start: 20070412
  2. FASLODEX [Suspect]
     Route: 030
     Dates: start: 20070510
  3. FASLODEX [Suspect]
     Route: 030
     Dates: start: 20070607

REACTIONS (1)
  - INJECTION SITE CELLULITIS [None]
